FAERS Safety Report 19276713 (Version 2)
Quarter: 2021Q2

REPORT INFORMATION
  Report Type: Spontaneous
  Country: JP (occurrence: JP)
  Receive Date: 20210519
  Receipt Date: 20210616
  Transmission Date: 20210717
  Serious: Yes (Death, Other)
  Sender: FDA-Public Use
  Company Number: JP-TAKEDA-2021TUS031899

PATIENT
  Age: 30 Year
  Sex: Male
  Weight: 32 kg

DRUGS (1)
  1. ELAPRASE [Suspect]
     Active Substance: IDURSULFASE
     Indication: MUCOPOLYSACCHARIDOSIS II
     Dosage: 16 MILLIGRAM
     Route: 042
     Dates: start: 200711, end: 202104

REACTIONS (2)
  - Myocardial infarction [Fatal]
  - Disease progression [Fatal]

NARRATIVE: CASE EVENT DATE: 20210510
